FAERS Safety Report 17287989 (Version 1)
Quarter: 2020Q1

REPORT INFORMATION
  Report Type: Spontaneous
  Country: CA (occurrence: CA)
  Receive Date: 20200120
  Receipt Date: 20200120
  Transmission Date: 20200409
  Serious: Yes (Other)
  Sender: FDA-Public Use
  Company Number: CA-EMD SERONO-9140128

PATIENT
  Age: 5 Month
  Sex: Male

DRUGS (2)
  1. SAIZEN [Suspect]
     Active Substance: SOMATROPIN
     Indication: HYPOPITUITARISM
     Route: 058
  2. HYDROCORTISONE. [Suspect]
     Active Substance: HYDROCORTISONE
     Indication: PRODUCT USED FOR UNKNOWN INDICATION
     Route: 065

REACTIONS (8)
  - Pallor [Unknown]
  - Viral infection [Unknown]
  - Extraocular muscle paresis [Unknown]
  - Optic nerve disorder [Unknown]
  - Oral candidiasis [Unknown]
  - Hypersensitivity [Unknown]
  - Influenza like illness [Unknown]
  - Rash [Unknown]
